FAERS Safety Report 24605401 (Version 1)
Quarter: 2024Q4

REPORT INFORMATION
  Report Type: Spontaneous
  Country: US (occurrence: US)
  Receive Date: 20241111
  Receipt Date: 20241111
  Transmission Date: 20250115
  Serious: No
  Sender: SANOFI AVENTIS
  Company Number: US-SA-2024SA321300

PATIENT
  Age: 45 Year
  Sex: Male
  Weight: 127.27 kg

DRUGS (2)
  1. DUPIXENT [Suspect]
     Active Substance: DUPILUMAB
     Indication: Nasal polyps
     Dosage: 1 DF, QOW
     Route: 058
  2. NASONEX [Concomitant]
     Active Substance: MOMETASONE FUROATE

REACTIONS (2)
  - Influenza [Recovered/Resolved]
  - Nasal congestion [Recovered/Resolved]

NARRATIVE: CASE EVENT DATE: 20241001
